APPROVED DRUG PRODUCT: MENRIUM 5-2
Active Ingredient: CHLORDIAZEPOXIDE; ESTROGENS, ESTERIFIED
Strength: 5MG;0.2MG
Dosage Form/Route: TABLET;ORAL
Application: N014740 | Product #002
Applicant: HOFFMANN LA ROCHE INC
Approved: Approved Prior to Jan 1, 1982 | RLD: No | RS: No | Type: DISCN